FAERS Safety Report 13775565 (Version 1)
Quarter: 2017Q3

REPORT INFORMATION
  Report Type: Spontaneous
  Country: PT (occurrence: PT)
  Receive Date: 20170720
  Receipt Date: 20170720
  Transmission Date: 20171127
  Serious: Yes (Hospitalization, Other)
  Sender: FDA-Public Use
  Company Number: PT-SA-2017SA131223

PATIENT
  Age: 79 Year
  Sex: Female

DRUGS (4)
  1. CEFTRIAXONE. [Concomitant]
     Active Substance: CEFTRIAXONE
  2. ENOXAPARIN SODIUM. [Suspect]
     Active Substance: ENOXAPARIN SODIUM
     Route: 065
  3. ENOXAPARIN SODIUM. [Suspect]
     Active Substance: ENOXAPARIN SODIUM
     Route: 065
  4. CLINDAMYCIN. [Concomitant]
     Active Substance: CLINDAMYCIN

REACTIONS (7)
  - Colitis ischaemic [Unknown]
  - Gastrointestinal wall thickening [Unknown]
  - Retroperitoneal haematoma [Recovering/Resolving]
  - Mesenteric vein thrombosis [Unknown]
  - Venous recanalisation [Unknown]
  - Muscle haemorrhage [Unknown]
  - Pulmonary embolism [Unknown]
